FAERS Safety Report 9000453 (Version 1)
Quarter: 2013Q1

REPORT INFORMATION
  Report Type: Spontaneous
  Country: US (occurrence: US)
  Receive Date: 20130107
  Receipt Date: 20130107
  Transmission Date: 20140127
  Serious: No
  Sender: FDA-Public Use
  Company Number: US-BIOGENIDEC-2013BI000201

PATIENT
  Sex: Male

DRUGS (2)
  1. TYSABRI [Suspect]
     Indication: MULTIPLE SCLEROSIS
     Route: 042
     Dates: start: 20120625, end: 20120917
  2. CHICKEN POX VACCINE [Concomitant]
     Indication: VARICELLA VIRUS TEST POSITIVE

REACTIONS (2)
  - Varicella virus test positive [Not Recovered/Not Resolved]
  - Multiple sclerosis [Not Recovered/Not Resolved]
